FAERS Safety Report 25047320 (Version 1)
Quarter: 2025Q1

REPORT INFORMATION
  Report Type: Report from Study
  Country: US (occurrence: US)
  Receive Date: 20250306
  Receipt Date: 20250306
  Transmission Date: 20250409
  Serious: Yes (Other)
  Sender: ALEXION PHARMACEUTICALS
  Company Number: US-ASTRAZENECA-202502USA026642US

PATIENT
  Age: 79 Year

DRUGS (1)
  1. STRENSIQ [Suspect]
     Active Substance: ASFOTASE ALFA
     Indication: Phosphorus metabolism disorder
     Dosage: 160 MILLIGRAM, TIW
     Route: 065

REACTIONS (7)
  - Neuropathy peripheral [Recovered/Resolved]
  - Atrial fibrillation [Not Recovered/Not Resolved]
  - Fall [Unknown]
  - Osteoporosis [Unknown]
  - Bone formation decreased [Unknown]
  - Essential tremor [Unknown]
  - Muscular weakness [Unknown]
